FAERS Safety Report 24788251 (Version 1)
Quarter: 2024Q4

REPORT INFORMATION
  Report Type: Spontaneous
  Country: US (occurrence: None)
  Receive Date: 20241228
  Receipt Date: 20241228
  Transmission Date: 20250115
  Serious: No
  Sender: Public
  Company Number: None

PATIENT
  Sex: Female
  Weight: 99.9 kg

DRUGS (3)
  1. CARBOPLATIN [Suspect]
     Active Substance: CARBOPLATIN
  2. FEMARA [Suspect]
     Active Substance: LETROZOLE
  3. TAXOL [Suspect]
     Active Substance: PACLITAXEL

REACTIONS (5)
  - Bone pain [None]
  - Therapeutic product effect decreased [None]
  - Condition aggravated [None]
  - Drug intolerance [None]
  - Injury [None]

NARRATIVE: CASE EVENT DATE: 20241028
